FAERS Safety Report 7998713-8 (Version None)
Quarter: 2011Q4

REPORT INFORMATION
  Report Type: 
  Country: None (occurrence: None)
  Receive Date: 20111221
  Receipt Date: 20111214
  Transmission Date: 20120403
  Serious: Yes (Hospitalization)
  Sender: FDA-Public Use
  Company Number: FR-PFIZER INC-2011303827

PATIENT
  Age: 54 Year
  Sex: Female
  Weight: 64 kg

DRUGS (2)
  1. ZOMETA [Suspect]
     Dosage: 4 MG, SINGLE
     Route: 042
     Dates: start: 20111031, end: 20111031
  2. SUTENT [Suspect]
     Dosage: 50 MG, 1X/DAY
     Route: 048
     Dates: start: 20111031, end: 20111107

REACTIONS (2)
  - HYPOPHOSPHATAEMIA [None]
  - HYPOCALCAEMIA [None]
